FAERS Safety Report 9258167 (Version 1)
Quarter: 2013Q1

REPORT INFORMATION
  Report Type: Spontaneous
  Country: US (occurrence: None)
  Receive Date: 20121212
  Receipt Date: 20121212
  Transmission Date: 20140127
  Serious: No
  Sender: FDA-Public Use
  Company Number: 1209USA003848

PATIENT
  Sex: Male

DRUGS (11)
  1. VICTRELIS [Suspect]
     Dosage: 4 DF, Q8H
     Dates: start: 20120816
  2. PEGASYS [Suspect]
     Dosage: 180 UG/0.5 ML
  3. RIBASPHERE [Suspect]
  4. COREG (CARVEDILOL) [Concomitant]
  5. ACCUPRIL (QUINAPRIL HYDROCHLORIDE) [Concomitant]
  6. TAMSULOSIN HYDROCHLORIDE [Concomitant]
  7. HYDROCHLOROTHIAXIDE (HYDROCHLOROTHIAZIDE) [Concomitant]
  8. VITAMIN B COMPLEX [Concomitant]
  9. OXYCONTIN (OXYCODONE HYDROCHLORIDE) [Concomitant]
  10. PRILOSEC OTC (OMEPRAZOLE MAGNESIUM) [Concomitant]
  11. CHOLECALCIFEROL (CHOLECALCIFEROL) [Concomitant]

REACTIONS (4)
  - Injection site rash [None]
  - Fatigue [None]
  - Haemoglobin decreased [None]
  - Nausea [None]
